FAERS Safety Report 23763787 (Version 1)
Quarter: 2024Q2

REPORT INFORMATION
  Report Type: Spontaneous
  Country: US (occurrence: US)
  Receive Date: 20240419
  Receipt Date: 20240419
  Transmission Date: 20240715
  Serious: No
  Sender: FDA-Public Use
  Company Number: US-Millicent Holdings Ltd.-MILL20240840

PATIENT
  Age: 68 Year
  Sex: Female

DRUGS (3)
  1. INTRAROSA [Suspect]
     Active Substance: PRASTERONE
     Indication: Pelvic floor dysfunction
     Dosage: 1 INSERT
     Route: 067
     Dates: start: 20240410, end: 20240412
  2. INTRAROSA [Suspect]
     Active Substance: PRASTERONE
     Indication: Uterine pain
  3. INTRAROSA [Suspect]
     Active Substance: PRASTERONE
     Indication: Atrophic vulvovaginitis

REACTIONS (9)
  - Vulvovaginal burning sensation [Not Recovered/Not Resolved]
  - Vulvovaginal erythema [Not Recovered/Not Resolved]
  - Skin warm [Not Recovered/Not Resolved]
  - Vulvovaginal discomfort [Not Recovered/Not Resolved]
  - Vulvovaginal pain [Not Recovered/Not Resolved]
  - Uterine pain [Not Recovered/Not Resolved]
  - Vulvovaginal inflammation [Not Recovered/Not Resolved]
  - Product complaint [Unknown]
  - Off label use [Unknown]

NARRATIVE: CASE EVENT DATE: 20240410
